FAERS Safety Report 24201323 (Version 3)
Quarter: 2025Q1

REPORT INFORMATION
  Report Type: Spontaneous
  Country: US (occurrence: US)
  Receive Date: 20240812
  Receipt Date: 20250310
  Transmission Date: 20250409
  Serious: Yes (Other)
  Sender: ACCORD
  Company Number: US-Accord-270347

PATIENT
  Age: 75 Year
  Sex: Male

DRUGS (9)
  1. ROPINIROLE [Suspect]
     Active Substance: ROPINIROLE
     Indication: Parkinson^s disease
  2. RELUGOLIX [Suspect]
     Active Substance: RELUGOLIX
     Indication: Prostate cancer
     Dosage: 360 MILLIGRAM, ONE TIME DOSE
     Route: 048
     Dates: start: 20211021, end: 20211021
  3. BUMEX [Suspect]
     Active Substance: BUMETANIDE
     Indication: Product used for unknown indication
  4. TEZEPELUMAB [Suspect]
     Active Substance: TEZEPELUMAB
     Indication: Product used for unknown indication
  5. OXYGEN [Concomitant]
     Active Substance: OXYGEN
     Indication: Respiratory failure
  6. RELUGOLIX [Suspect]
     Active Substance: RELUGOLIX
     Indication: Prostate cancer
     Dosage: 120 MILLIGRAM, QD
     Route: 048
     Dates: start: 20211021
  7. RELUGOLIX [Suspect]
     Active Substance: RELUGOLIX
     Indication: Prostate cancer
  8. RELUGOLIX [Suspect]
     Active Substance: RELUGOLIX
     Indication: Prostate cancer
     Route: 048
  9. RELUGOLIX [Suspect]
     Active Substance: RELUGOLIX
     Indication: Prostate cancer
     Route: 048

REACTIONS (18)
  - Pericardial effusion [Unknown]
  - Renal failure [Unknown]
  - Cardiac failure congestive [Unknown]
  - Heart rate abnormal [Unknown]
  - Pulmonary pain [Unknown]
  - Dehydration [Unknown]
  - Pollakiuria [Unknown]
  - Illness [Unknown]
  - Joint injury [Unknown]
  - Skin laceration [Unknown]
  - Dyspnoea [Unknown]
  - Depressed mood [Unknown]
  - Myalgia [Recovered/Resolved]
  - Malaise [Unknown]
  - Asthenia [Unknown]
  - Arthralgia [Not Recovered/Not Resolved]
  - Gynaecomastia [Unknown]
  - Headache [Unknown]

NARRATIVE: CASE EVENT DATE: 20211001
